FAERS Safety Report 5856141-5 (Version None)
Quarter: 2008Q3

REPORT INFORMATION
  Report Type: 
  Country: None (occurrence: None)
  Receive Date: 20080825
  Receipt Date: 20080812
  Transmission Date: 20090109
  Serious: Yes (Hospitalization)
  Sender: FDA-Public Use
  Company Number: DE-ROCHE-580711

PATIENT
  Sex: Female

DRUGS (3)
  1. BONIVA [Suspect]
     Indication: DRUG USE FOR UNKNOWN INDICATION
     Route: 065
     Dates: start: 20080529
  2. CARVEDILOL [Concomitant]
     Dosage: DOSING REGIMEN REPORTED AS :^DAILY DOSE: 1 DF DOSAGE FORM EVERY DAY^ {1 DF DOSAGE FORM,  1 IN 1 DAY}
  3. TRI.-THIAZID [Concomitant]
     Dosage: DOSING REGIMEN REPORTED AS :^DAILY DOSE: 1 DF DOSAGE FORM EVERY DAY^ {1 DF DOSAGE FORM,  1 IN 1 DAY}

REACTIONS (2)
  - BACK PAIN [None]
  - LIVER DISORDER [None]
